FAERS Safety Report 14178758 (Version 2)
Quarter: 2017Q4

REPORT INFORMATION
  Report Type: Spontaneous
  Country: MY (occurrence: MY)
  Receive Date: 20171110
  Receipt Date: 20171120
  Transmission Date: 20180321
  Serious: Yes (Death)
  Sender: FDA-Public Use
  Company Number: MY-ACTELION-A-CH2017-162222

PATIENT
  Age: 38 Year
  Sex: Female
  Weight: 54.4 kg

DRUGS (3)
  1. SILDENAFIL. [Concomitant]
     Active Substance: SILDENAFIL
     Indication: PULMONARY ARTERIAL HYPERTENSION
     Dosage: 25 MG, TID
     Route: 048
     Dates: start: 20110323, end: 20171026
  2. MILRINONE [Concomitant]
     Active Substance: MILRINONE
     Route: 042
  3. OPSUMIT [Suspect]
     Active Substance: MACITENTAN
     Indication: PULMONARY ARTERIAL HYPERTENSION
     Dosage: 5 MG, OD
     Route: 048
     Dates: start: 20171019, end: 20171026

REACTIONS (3)
  - Right ventricular failure [Fatal]
  - Pulmonary arterial hypertension [Fatal]
  - Hypotension [Fatal]

NARRATIVE: CASE EVENT DATE: 201710
